FAERS Safety Report 18253612 (Version 2)
Quarter: 2020Q4

REPORT INFORMATION
  Report Type: Report from Study
  Country: CA (occurrence: CA)
  Receive Date: 20200910
  Receipt Date: 20201113
  Transmission Date: 20210113
  Serious: Yes (Other)
  Sender: FDA-Public Use
  Company Number: CA-GILEAD-2020-0470708

PATIENT
  Sex: Male

DRUGS (1)
  1. AZTREONAM LYSINE [Suspect]
     Active Substance: AZTREONAM LYSINE
     Indication: CYSTIC FIBROSIS
     Dosage: NEW CYCLE SINCE THE LAST COUPLE OF DAYS, AFTER 28 DAYS OFF AND SO FAR
     Route: 055
     Dates: end: 202009

REACTIONS (4)
  - Chest discomfort [Unknown]
  - Intentional dose omission [Unknown]
  - Enterocolitis bacterial [Unknown]
  - Dyspnoea [Unknown]
